FAERS Safety Report 5424578-4 (Version None)
Quarter: 2007Q3

REPORT INFORMATION
  Report Type: 
  Country: None (occurrence: None)
  Receive Date: 20070822
  Receipt Date: 20070807
  Transmission Date: 20080115
  Serious: Yes (Other)
  Sender: FDA-Public Use
  Company Number: 016960

PATIENT
  Age: 59 Year
  Sex: Female

DRUGS (3)
  1. ESTRACE [Suspect]
     Indication: MENOPAUSAL SYMPTOMS
     Dosage: 2 MG, QHS, ORAL
     Route: 048
     Dates: start: 20070701, end: 20070801
  2. ESTRACE [Suspect]
     Indication: MENOPAUSAL SYMPTOMS
     Dosage: 2 MG, QHS, ORAL
     Route: 048
     Dates: start: 19970101, end: 20070801
  3. LEVOTHROID [Concomitant]

REACTIONS (9)
  - BLOOD PRESSURE DECREASED [None]
  - CARCINOID SYNDROME [None]
  - DIARRHOEA [None]
  - DRUG WITHDRAWAL SYNDROME [None]
  - HEADACHE [None]
  - HYPERHIDROSIS [None]
  - HYPOAESTHESIA [None]
  - PALPITATIONS [None]
  - PARAESTHESIA [None]
